FAERS Safety Report 6664625-5 (Version None)
Quarter: 2010Q1

REPORT INFORMATION
  Report Type: 
  Country: None (occurrence: None)
  Receive Date: 20100330
  Receipt Date: 20100115
  Transmission Date: 20100710
  Serious: Yes (Life-Threatening, Hospitalization)
  Sender: FDA-Public Use
  Company Number: 6056041

PATIENT
  Age: 32 Year
  Sex: Female

DRUGS (7)
  1. LEVOTHYROXINE SODIUM [Suspect]
     Indication: BASEDOW'S DISEASE
     Dosage: 25 MCG, ORAL, 50 MCG, ORAL, 75 MCG, ORAL
     Route: 048
     Dates: start: 20090901, end: 20091001
  2. LEVOTHYROXINE SODIUM [Suspect]
     Indication: BASEDOW'S DISEASE
     Dosage: 25 MCG, ORAL, 50 MCG, ORAL, 75 MCG, ORAL
     Route: 048
     Dates: start: 20090901, end: 20091001
  3. LEVOTHYROXINE SODIUM [Suspect]
     Indication: BASEDOW'S DISEASE
     Dosage: 25 MCG, ORAL, 50 MCG, ORAL, 75 MCG, ORAL
     Route: 048
     Dates: start: 20090301
  4. NEOMERCAZOLE (TABLET) (CARBIMAZOLE) [Suspect]
     Indication: BASEDOW'S DISEASE
     Dosage: 40 MG, ORAL; 20 MG, ORAL, 15 MG, ORAL
     Route: 048
     Dates: start: 20090101, end: 20090301
  5. NEOMERCAZOLE (TABLET) (CARBIMAZOLE) [Suspect]
     Indication: BASEDOW'S DISEASE
     Dosage: 40 MG, ORAL; 20 MG, ORAL, 15 MG, ORAL
     Route: 048
     Dates: start: 20090301, end: 20090901
  6. NEOMERCAZOLE (TABLET) (CARBIMAZOLE) [Suspect]
     Indication: BASEDOW'S DISEASE
     Dosage: 40 MG, ORAL; 20 MG, ORAL, 15 MG, ORAL
     Route: 048
     Dates: start: 20090901, end: 20091001
  7. ASPIRIN UPSA 1000 (ACETYLSALICYLIC ACID) [Concomitant]

REACTIONS (9)
  - ASTHENIA [None]
  - CARDIAC ARREST [None]
  - CHOLESTASIS [None]
  - COMA [None]
  - FALL [None]
  - HEADACHE [None]
  - MALAISE [None]
  - MUSCULOSKELETAL STIFFNESS [None]
  - VENTRICULAR FIBRILLATION [None]
